FAERS Safety Report 6242155-2 (Version None)
Quarter: 2009Q2

REPORT INFORMATION
  Report Type: 
  Country: None (occurrence: None)
  Receive Date: 20090622
  Receipt Date: 20090622
  Transmission Date: 20091009
  Serious: No
  Sender: FDA-Public Use
  Company Number: None

PATIENT
  Age: 69 Year
  Sex: Male
  Weight: 102.0593 kg

DRUGS (11)
  1. ENALAPRIL MALEATE [Suspect]
     Indication: HYPERTENSION
     Dosage: 1 TABLET TWICE DAILY 047
     Dates: start: 20090518
  2. PRILOSEC [Concomitant]
  3. XANAX [Concomitant]
  4. FLONASE [Concomitant]
  5. PLAVIX [Concomitant]
  6. ATENOLOL [Concomitant]
  7. HYDROCHLOROTHIAZIDE [Concomitant]
  8. ASPIRIN [Concomitant]
  9. VITAMIN D [Concomitant]
  10. OMEGA-3 FATTY ACIDS [Concomitant]
  11. ACAI [Concomitant]

REACTIONS (1)
  - BLOOD PRESSURE INCREASED [None]
